FAERS Safety Report 20772866 (Version 3)
Quarter: 2024Q4

REPORT INFORMATION
  Report Type: Report from Study
  Country: US (occurrence: US)
  Receive Date: 20220502
  Receipt Date: 20241213
  Transmission Date: 20250114
  Serious: Yes (Other)
  Sender: EMD SERONO INC
  Company Number: US-Merck Healthcare KGaA-9316110

PATIENT
  Age: 51 Year
  Sex: Female

DRUGS (2)
  1. REBIF [Suspect]
     Active Substance: INTERFERON BETA-1A
     Indication: Multiple sclerosis
     Dates: start: 199601
  2. REBIF [Suspect]
     Active Substance: INTERFERON BETA-1A
     Dates: start: 2003

REACTIONS (2)
  - Spinal operation [Unknown]
  - Sciatica [Unknown]

NARRATIVE: CASE EVENT DATE: 20130101
